FAERS Safety Report 19836536 (Version 2)
Quarter: 2022Q1

REPORT INFORMATION
  Report Type: Spontaneous
  Country: US (occurrence: None)
  Receive Date: 20210914
  Receipt Date: 20220101
  Transmission Date: 20220423
  Serious: No
  Sender: FDA-Public Use
  Company Number: 2021A712632

PATIENT
  Age: 23521 Day
  Sex: Male
  Weight: 113.4 kg

DRUGS (1)
  1. BYETTA [Suspect]
     Active Substance: EXENATIDE
     Indication: Diabetes mellitus
     Route: 058
     Dates: start: 20150124, end: 20180927

REACTIONS (2)
  - Vascular injury [Unknown]
  - Product contamination with body fluid [Unknown]

NARRATIVE: CASE EVENT DATE: 20210902
